FAERS Safety Report 4488102-5 (Version None)
Quarter: 2004Q4

REPORT INFORMATION
  Report Type: 
  Country: None (occurrence: None)
  Receive Date: 20041028
  Receipt Date: 20041025
  Transmission Date: 20050328
  Serious: Yes (Death)
  Sender: FDA-Public Use
  Company Number: DE-GLAXOSMITHKLINE-D0045026A

PATIENT
  Sex: Female

DRUGS (3)
  1. LAMICTAL [Suspect]
     Indication: EPILEPSY
     Route: 048
  2. REMERGIL [Concomitant]
     Route: 065
  3. PARACETAMOL [Concomitant]
     Route: 065

REACTIONS (1)
  - HEPATIC FAILURE [None]
